FAERS Safety Report 4615377-1 (Version None)
Quarter: 2005Q1

REPORT INFORMATION
  Report Type: 
  Country: None (occurrence: None)
  Receive Date: 20050317
  Receipt Date: 20050307
  Transmission Date: 20050727
  Serious: Yes (Hospitalization)
  Sender: FDA-Public Use
  Company Number: 2005042623

PATIENT
  Age: 69 Year
  Sex: Male
  Weight: 93 kg

DRUGS (6)
  1. INSPRA [Suspect]
     Indication: CARDIAC FAILURE
     Dosage: 50 MG (50 MG, QD), ORAL
     Route: 048
     Dates: start: 20041101, end: 20050202
  2. AMIODARONE HCL [Concomitant]
  3. SPIRONOLACTONE [Concomitant]
  4. ACETYLDIGOXIN (ACETYLDIGOXIN) [Concomitant]
  5. RAMIPRIL [Concomitant]
  6. DRUG, UNSPECIFIED (DRUG, UNSPECIFIED) [Concomitant]

REACTIONS (3)
  - DYSPNOEA [None]
  - OBSTRUCTIVE AIRWAYS DISORDER [None]
  - PULMONARY ARTERIAL PRESSURE INCREASED [None]
